FAERS Safety Report 5804567-8 (Version None)
Quarter: 2008Q3

REPORT INFORMATION
  Report Type: 
  Country: None (occurrence: None)
  Receive Date: 20080709
  Receipt Date: 20080707
  Transmission Date: 20090109
  Serious: Yes (Death, Life-Threatening, Hospitalization)
  Sender: FDA-Public Use
  Company Number: A0545125A

PATIENT
  Age: 64 Year
  Sex: Female
  Weight: 76.3 kg

DRUGS (9)
  1. TOSITUMOMAB [Suspect]
     Indication: NON-HODGKIN'S LYMPHOMA
     Route: 042
     Dates: start: 20010620, end: 20010620
  2. IODINE I 131 TOSITUMOMAB [Suspect]
     Indication: NON-HODGKIN'S LYMPHOMA
     Route: 042
     Dates: start: 20010620, end: 20010620
  3. TOSITUMOMAB [Suspect]
     Route: 042
     Dates: start: 20010627, end: 20010627
  4. IODINE I 131 TOSITUMOMAB [Suspect]
     Route: 042
     Dates: start: 20010627, end: 20010627
  5. PREMARIN [Concomitant]
  6. INDERAL [Concomitant]
  7. TYLENOL W/ CODEINE [Concomitant]
  8. ZOFRAN [Concomitant]
  9. ATIVAN [Concomitant]

REACTIONS (25)
  - ADRENAL INSUFFICIENCY [None]
  - ANAEMIA [None]
  - ATRIAL FIBRILLATION [None]
  - ATRIAL FLUTTER [None]
  - BLOOD ALBUMIN DECREASED [None]
  - BONE MARROW FAILURE [None]
  - CONVULSION [None]
  - DECREASED APPETITE [None]
  - DEHYDRATION [None]
  - DISEASE PROGRESSION [None]
  - ENCEPHALOPATHY [None]
  - FATIGUE [None]
  - FEBRILE NEUTROPENIA [None]
  - HYPOPHAGIA [None]
  - HYPOTENSION [None]
  - HYPOXIA [None]
  - LETHARGY [None]
  - LEUKOPENIA [None]
  - MALIGNANT MESENTERIC NEOPLASM [None]
  - MENINGITIS [None]
  - NAUSEA [None]
  - ORTHOSTATIC HYPOTENSION [None]
  - THROMBOCYTOPENIA [None]
  - VOMITING [None]
  - WEIGHT DECREASED [None]
